FAERS Safety Report 17611832 (Version 1)
Quarter: 2020Q2

REPORT INFORMATION
  Report Type: Spontaneous
  Country: FR (occurrence: FR)
  Receive Date: 20200401
  Receipt Date: 20200401
  Transmission Date: 20200713
  Serious: Yes (Other)
  Sender: FDA-Public Use
  Company Number: FR-ASTRAZENECA-2020SE45321

PATIENT
  Age: 95 Year
  Sex: Female

DRUGS (6)
  1. MOVENTIG [Suspect]
     Active Substance: NALOXEGOL OXALATE
     Indication: CONSTIPATION
     Dosage: 12.5 MG, 1 D
     Route: 048
     Dates: start: 20191226, end: 20200102
  2. DUROGESIC [Suspect]
     Active Substance: FENTANYL
     Indication: PAIN
     Dosage: 25 UG, 72 H
     Route: 062
     Dates: start: 20191220, end: 20200103
  3. PREGABALINE [Suspect]
     Active Substance: PREGABALIN
     Indication: PAIN
     Dosage: 50 MG, 1 D
     Route: 065
     Dates: start: 20191231, end: 20200103
  4. ORAMORPH [Suspect]
     Active Substance: MORPHINE SULFATE
     Indication: PAIN
     Dosage: 12 (DRP), 1 D
     Route: 048
     Dates: start: 20191130, end: 20200103
  5. LINEZOLIDE [Suspect]
     Active Substance: LINEZOLID
     Indication: BACTERIAL INFECTION
     Dosage: 1200 MG, 1 D
     Route: 042
     Dates: start: 20191227, end: 20200103
  6. CEFEPIME [Suspect]
     Active Substance: CEFEPIME HYDROCHLORIDE
     Indication: BACTERIAL INFECTION
     Dosage: 1 G, 1 D
     Route: 042
     Dates: start: 20191225, end: 20191231

REACTIONS (3)
  - Metabolic encephalopathy [Not Recovered/Not Resolved]
  - Thrombocytopenia [Recovered/Resolved]
  - Electroencephalogram abnormal [Unknown]

NARRATIVE: CASE EVENT DATE: 20191230
